FAERS Safety Report 6601598-5 (Version None)
Quarter: 2010Q1

REPORT INFORMATION
  Report Type: 
  Country: None (occurrence: None)
  Receive Date: 20100225
  Receipt Date: 20100218
  Transmission Date: 20100710
  Serious: Yes (Hospitalization)
  Sender: FDA-Public Use
  Company Number: JP-ROCHE-620365

PATIENT
  Sex: Female
  Weight: 43.3 kg

DRUGS (14)
  1. TOCILIZUMAB [Suspect]
     Indication: RHEUMATOID ARTHRITIS
     Route: 041
     Dates: start: 20080711, end: 20080711
  2. TOCILIZUMAB [Suspect]
     Route: 041
     Dates: start: 20080806, end: 20080806
  3. TOCILIZUMAB [Suspect]
     Route: 041
     Dates: start: 20080903, end: 20080903
  4. TOCILIZUMAB [Suspect]
     Route: 041
     Dates: start: 20081008, end: 20081008
  5. TOCILIZUMAB [Suspect]
     Route: 041
     Dates: start: 20081112, end: 20081112
  6. TOCILIZUMAB [Suspect]
     Route: 041
     Dates: start: 20081210, end: 20081210
  7. TOCILIZUMAB [Suspect]
     Route: 041
     Dates: start: 20090119, end: 20090119
  8. PREDNISOLONE [Concomitant]
     Dosage: FORM: ORAL (NOT OTHERWISE SPECIFIED)
     Route: 048
     Dates: end: 20081007
  9. URSO 250 [Concomitant]
     Dosage: FORM: ORAL (NOT OTHERWISE SPECIFIED)
     Route: 048
  10. MUCOSTA [Concomitant]
     Dosage: FORM: ORAL (NOT OTHERWISE SPECIFIED)
     Route: 048
  11. MARZULENE [Concomitant]
     Route: 048
  12. ALOSENN [Concomitant]
     Route: 048
  13. PURSENNID [Concomitant]
     Route: 048
  14. LENDORMIN [Concomitant]
     Route: 048

REACTIONS (4)
  - ABDOMINAL PAIN [None]
  - ABSCESS LIMB [None]
  - ARTHRALGIA [None]
  - SKIN ULCER [None]
